FAERS Safety Report 18378209 (Version 1)
Quarter: 2020Q4

REPORT INFORMATION
  Report Type: Spontaneous
  Country: US (occurrence: US)
  Receive Date: 20201013
  Receipt Date: 20201013
  Transmission Date: 20210114
  Serious: Yes (Other)
  Sender: FDA-Public Use
  Company Number: US-ARBOR PHARMACEUTICALS, LLC-US-2020ARB000823

PATIENT
  Age: 47 Year
  Sex: Female
  Weight: 94.33 kg

DRUGS (3)
  1. FUROSEMIDE. [Concomitant]
     Active Substance: FUROSEMIDE
     Indication: PRODUCT USED FOR UNKNOWN INDICATION
     Dosage: UNK
  2. XYZAL [Concomitant]
     Active Substance: LEVOCETIRIZINE DIHYDROCHLORIDE
     Indication: PRODUCT USED FOR UNKNOWN INDICATION
     Dosage: UNK
  3. EDARBI [Suspect]
     Active Substance: AZILSARTAN KAMEDOXOMIL
     Indication: HYPERTENSION
     Dosage: 80 MG, QD
     Route: 048
     Dates: start: 20180711, end: 20200913

REACTIONS (11)
  - Diabetes mellitus [Unknown]
  - Renal impairment [Unknown]
  - Weight increased [Unknown]
  - Loss of personal independence in daily activities [Recovering/Resolving]
  - Infertility [Unknown]
  - Inflammation [Unknown]
  - Fatigue [Unknown]
  - Skin injury [Unknown]
  - Oedema [Unknown]
  - Mobility decreased [Unknown]
  - Blood creatinine increased [Unknown]

NARRATIVE: CASE EVENT DATE: 20180725
